FAERS Safety Report 8267933-X (Version None)
Quarter: 2012Q2

REPORT INFORMATION
  Report Type: 
  Country: None (occurrence: None)
  Receive Date: 20120409
  Receipt Date: 20120404
  Transmission Date: 20120825
  Serious: Yes (Other)
  Sender: FDA-Public Use
  Company Number: PHHY2012JP029541

PATIENT
  Age: 64 Year
  Sex: Male

DRUGS (3)
  1. PREDNISOLONE [Concomitant]
     Dosage: 5 MG, UNK
     Route: 048
  2. TASIGNA [Suspect]
     Indication: CHRONIC MYELOID LEUKAEMIA
     Dosage: 300 MG, DAILY
     Route: 048
     Dates: start: 20120303, end: 20120331
  3. PREDNISOLONE [Concomitant]
     Dosage: 10 MG, UNK
     Route: 048

REACTIONS (7)
  - ASPARTATE AMINOTRANSFERASE INCREASED [None]
  - HEADACHE [None]
  - PYREXIA [None]
  - RASH [None]
  - ERYTHEMA [None]
  - ALANINE AMINOTRANSFERASE INCREASED [None]
  - HEPATIC FUNCTION ABNORMAL [None]
